FAERS Safety Report 5146276-7 (Version None)
Quarter: 2006Q4

REPORT INFORMATION
  Report Type: 
  Country: None (occurrence: None)
  Receive Date: 20061102
  Receipt Date: 20061020
  Transmission Date: 20070319
  Serious: Yes (Hospitalization, Other)
  Sender: FDA-Public Use
  Company Number: 2006129504

PATIENT
  Age: 9 Year
  Sex: Male

DRUGS (2)
  1. GENOTROPIN [Suspect]
     Indication: PRADER-WILLI SYNDROME
     Dosage: 1 MG (INTERVAL: 6 DAYS/7)
     Dates: start: 20041119, end: 20050208
  2. GENOTROPIN [Suspect]
     Indication: PRADER-WILLI SYNDROME
     Dosage: 1 MG (INTERVAL: 6 DAYS/7)
     Dates: start: 20051124

REACTIONS (4)
  - ADENOIDAL HYPERTROPHY [None]
  - MACROGLOSSIA [None]
  - SLEEP APNOEA SYNDROME [None]
  - SNORING [None]
